FAERS Safety Report 16300940 (Version 3)
Quarter: 2021Q4

REPORT INFORMATION
  Report Type: Spontaneous
  Country: US (occurrence: None)
  Receive Date: 20190510
  Receipt Date: 20211221
  Transmission Date: 20220303
  Serious: Yes (Other)
  Sender: FDA-Public Use
  Company Number: 2019SE10934

PATIENT
  Sex: Male
  Weight: 88 kg

DRUGS (30)
  1. NEXIUM [Suspect]
     Active Substance: ESOMEPRAZOLE MAGNESIUM
     Dosage: FOR VARIOUS DATES AND YEARS PRIOR TO AND/OR INCLUDING THE DATE OF PLAINTIFF^S INJURY OR INJURIES.
     Route: 048
  2. NEXIUM [Suspect]
     Active Substance: ESOMEPRAZOLE MAGNESIUM
     Dosage: 40.0MG UNKNOWN
     Route: 048
  3. NEXIUM 24HR [Suspect]
     Active Substance: ESOMEPRAZOLE MAGNESIUM
     Dosage: FOR VARIOUS DATES AND YEARS PRIOR TO AND/OR INCLUDING THE DATE OF PLAINTIFF^S INJURY OR INJURIES.
     Route: 048
  4. OMEPRAZOLE [Suspect]
     Active Substance: OMEPRAZOLE
     Dosage: GENERIC
     Route: 065
     Dates: start: 20170719
  5. PANTOPRAZOLE [Suspect]
     Active Substance: PANTOPRAZOLE
     Dosage: GENERIC
     Route: 065
     Dates: start: 20120227
  6. DOXAZOSIN [Concomitant]
     Active Substance: DOXAZOSIN MESYLATE
  7. AMOXICILLIN [Concomitant]
     Active Substance: AMOXICILLIN
  8. ATENOLOL [Concomitant]
     Active Substance: ATENOLOL
  9. FENOFIBRATE [Concomitant]
     Active Substance: FENOFIBRATE
  10. TAMSULOSIN [Concomitant]
     Active Substance: TAMSULOSIN
  11. AVODART [Concomitant]
     Active Substance: DUTASTERIDE
  12. LIPITOR [Concomitant]
     Active Substance: ATORVASTATIN CALCIUM
  13. ZETIA [Concomitant]
     Active Substance: EZETIMIBE
  14. DICYCLOMINE [Concomitant]
     Active Substance: DICYCLOMINE HYDROCHLORIDE
  15. FLECAINIDE [Concomitant]
     Active Substance: FLECAINIDE
  16. METOPROLOL SUCCINATE [Concomitant]
     Active Substance: METOPROLOL SUCCINATE
  17. PEPCID [Concomitant]
     Active Substance: FAMOTIDINE
  18. TRICOR [Concomitant]
     Active Substance: FENOFIBRATE
  19. TAZTIA XT [Concomitant]
     Active Substance: DILTIAZEM HYDROCHLORIDE
     Dates: start: 20151103
  20. NIASPAN [Concomitant]
     Active Substance: NIACIN
     Dates: start: 20151103
  21. CIPROFLOXACIN [Concomitant]
     Active Substance: CIPROFLOXACIN
     Dates: start: 20151103
  22. METHYLPREDNISOLONE [Concomitant]
     Active Substance: METHYLPREDNISOLONE
     Dates: start: 20151103
  23. MAG CITRATE [Concomitant]
     Dates: start: 20151103
  24. ONDANSETRON [Concomitant]
     Active Substance: ONDANSETRON
     Dates: start: 20151103
  25. LISINOPRIL [Concomitant]
     Active Substance: LISINOPRIL
     Dates: start: 20151103
  26. LYRICA [Concomitant]
     Active Substance: PREGABALIN
     Dates: start: 20151103
  27. CETIRIZINE [Concomitant]
     Active Substance: CETIRIZINE HYDROCHLORIDE
     Dates: start: 20151103
  28. FLUTICASONE [Concomitant]
     Active Substance: FLUTICASONE
     Dates: start: 20151103
  29. LOSARTAN [Concomitant]
     Active Substance: LOSARTAN
     Dates: start: 20151103
  30. FLUAD NOS [Concomitant]
     Active Substance: INFLUENZA VIRUS VACCINE
     Dates: start: 20151103

REACTIONS (4)
  - Renal failure [Unknown]
  - Acute kidney injury [Unknown]
  - Chronic kidney disease [Unknown]
  - Rebound acid hypersecretion [Unknown]
